FAERS Safety Report 17523748 (Version 2)
Quarter: 2020Q2

REPORT INFORMATION
  Report Type: Report from Study
  Country: US (occurrence: US)
  Receive Date: 20200311
  Receipt Date: 20200415
  Transmission Date: 20200713
  Serious: Yes (Hospitalization, Other)
  Sender: FDA-Public Use
  Company Number: US-ASTELLAS-2019US046351

PATIENT
  Age: 94 Year
  Sex: Male

DRUGS (1)
  1. ENZALUTAMIDE [Suspect]
     Active Substance: ENZALUTAMIDE
     Indication: HORMONE-REFRACTORY PROSTATE CANCER
     Route: 048

REACTIONS (6)
  - Obstructive nephropathy [Recovered/Resolved]
  - Urinary retention [Unknown]
  - Kidney infection [Recovered/Resolved]
  - Product availability issue [Unknown]
  - Bladder outlet obstruction [Unknown]
  - Product availability issue [Unknown]

NARRATIVE: CASE EVENT DATE: 20191119
